FAERS Safety Report 11639683 (Version 1)
Quarter: 2015Q4

REPORT INFORMATION
  Report Type: Spontaneous
  Country: US (occurrence: US)
  Receive Date: 20151019
  Receipt Date: 20151019
  Transmission Date: 20160304
  Serious: No
  Sender: FDA-Public Use
  Company Number: US-PAR PHARMACEUTICAL, INC-2015SCPR014176

PATIENT

DRUGS (1)
  1. OMEGA-3-ACID ETHYL ESTERS. [Suspect]
     Active Substance: OMEGA-3-ACID ETHYL ESTERS
     Indication: BLOOD TRIGLYCERIDES INCREASED
     Dosage: 2 DF, / DAY, IN THE MORNING
     Route: 048
     Dates: start: 201507

REACTIONS (3)
  - Drug administration error [Unknown]
  - Eructation [Recovered/Resolved]
  - Incorrect product storage [None]

NARRATIVE: CASE EVENT DATE: 201507
